FAERS Safety Report 7987215-0 (Version None)
Quarter: 2011Q4

REPORT INFORMATION
  Report Type: 
  Country: None (occurrence: None)
  Receive Date: 20111216
  Receipt Date: 20111208
  Transmission Date: 20120403
  Serious: Yes (Other)
  Sender: FDA-Public Use
  Company Number: PHHY2011US107226

PATIENT
  Age: 53 Year
  Sex: Male

DRUGS (2)
  1. CYCLOBENZAPRINE [Suspect]
     Indication: BACK PAIN
  2. ACETAMINOPHEN AND HYDROCODONE BITARTRATE [Suspect]
     Indication: BACK PAIN

REACTIONS (9)
  - TREMOR [None]
  - NEUROLEPTIC MALIGNANT SYNDROME [None]
  - LEUKOCYTOSIS [None]
  - PYREXIA [None]
  - MUSCLE RIGIDITY [None]
  - RESPIRATORY RATE INCREASED [None]
  - HYPERHIDROSIS [None]
  - TACHYPNOEA [None]
  - TACHYCARDIA [None]
